FAERS Safety Report 5799808-X (Version None)
Quarter: 2008Q3

REPORT INFORMATION
  Report Type: 
  Country: None (occurrence: None)
  Receive Date: 20080701
  Receipt Date: 20080613
  Transmission Date: 20090109
  Serious: Yes (Hospitalization)
  Sender: FDA-Public Use
  Company Number: 2008BI013439

PATIENT
  Age: 40 Year
  Sex: Female

DRUGS (8)
  1. TYSABRI [Suspect]
     Indication: MULTIPLE SCLEROSIS
     Dosage: 300 MG; QM; IV
     Route: 042
     Dates: start: 20080423
  2. VALIUM [Concomitant]
  3. BACLOFEN [Concomitant]
  4. CYMBALTA [Concomitant]
  5. PERCOCET [Concomitant]
  6. PEPCID [Concomitant]
  7. PROVIGIL [Concomitant]
  8. LAXATIVES [Concomitant]

REACTIONS (21)
  - BACK PAIN [None]
  - CHEST PAIN [None]
  - CHILLS [None]
  - CONFUSIONAL STATE [None]
  - DIZZINESS [None]
  - DYSPNOEA [None]
  - FATIGUE [None]
  - GAIT DISTURBANCE [None]
  - GENITAL DISORDER FEMALE [None]
  - HEADACHE [None]
  - HYPOAESTHESIA [None]
  - MASS [None]
  - MUSCULOSKELETAL STIFFNESS [None]
  - NAUSEA [None]
  - PAIN IN EXTREMITY [None]
  - PARAPLEGIA [None]
  - SKIN DISCOLOURATION [None]
  - SWELLING [None]
  - TREMOR [None]
  - URINARY TRACT INFECTION [None]
  - VAGINAL ODOUR [None]
